FAERS Safety Report 6765734-2 (Version None)
Quarter: 2010Q2

REPORT INFORMATION
  Report Type: 
  Country: None (occurrence: None)
  Receive Date: 20100611
  Receipt Date: 20100604
  Transmission Date: 20101027
  Serious: Yes (Other)
  Sender: FDA-Public Use
  Company Number: ES-JNJFOC-20100507906

PATIENT
  Age: 35 Year
  Sex: Male

DRUGS (3)
  1. PREZISTA [Suspect]
     Indication: PROPHYLAXIS AGAINST HIV INFECTION
     Route: 065
  2. RITONAVIR [Suspect]
     Indication: PROPHYLAXIS AGAINST HIV INFECTION
  3. TRUVADA [Concomitant]
     Indication: PROPHYLAXIS AGAINST HIV INFECTION

REACTIONS (3)
  - CLUSTER HEADACHE [None]
  - OFF LABEL USE [None]
  - PARAESTHESIA [None]
